FAERS Safety Report 5738619-8 (Version None)
Quarter: 2008Q2

REPORT INFORMATION
  Report Type: 
  Country: None (occurrence: None)
  Receive Date: 20080515
  Receipt Date: 20080507
  Transmission Date: 20081010
  Serious: Yes (Hospitalization)
  Sender: FDA-Public Use
  Company Number: PHBS1996AU06338

PATIENT
  Age: 70 Year
  Sex: Male

DRUGS (1)
  1. FAMVIR [Suspect]
     Indication: HERPES ZOSTER
     Dosage: 250 MG, TID
     Route: 048
     Dates: start: 19961023, end: 19961025

REACTIONS (1)
  - ANGIOEDEMA [None]
